FAERS Safety Report 18257177 (Version 1)
Quarter: 2020Q3

REPORT INFORMATION
  Report Type: Spontaneous
  Country: US (occurrence: US)
  Receive Date: 20200910
  Receipt Date: 20200910
  Transmission Date: 20201103
  Serious: Yes (Death)
  Sender: FDA-Public Use
  Company Number: None

PATIENT
  Age: 65 Year
  Sex: Female

DRUGS (11)
  1. LISINOPRIL. [Concomitant]
     Active Substance: LISINOPRIL
  2. METHYLPRED [Concomitant]
     Active Substance: METHYLPREDNISOLONE
  3. PREDNISOLONE. [Concomitant]
     Active Substance: PREDNISOLONE
  4. PROCHLORPER [Concomitant]
  5. OFLOXACIN. [Concomitant]
     Active Substance: OFLOXACIN
  6. EVEROLIMUS 7.5MG (7 TAB/CARD) [Suspect]
     Active Substance: EVEROLIMUS
     Indication: BREAST CANCER FEMALE
     Route: 048
     Dates: start: 20200905, end: 20200905
  7. ATORVASTATIN [Concomitant]
     Active Substance: ATORVASTATIN
  8. GLIPIZIDE ER [Concomitant]
     Active Substance: GLIPIZIDE
  9. EXEMESTANE 25MG TAB [Suspect]
     Active Substance: EXEMESTANE
     Indication: BREAST CANCER FEMALE
     Route: 048
     Dates: start: 20200701, end: 20200701
  10. FASLODEX [Concomitant]
     Active Substance: FULVESTRANT
  11. KETOROLAC [Concomitant]
     Active Substance: KETOROLAC TROMETHAMINE

REACTIONS (1)
  - Death [None]

NARRATIVE: CASE EVENT DATE: 20200905
